FAERS Safety Report 8405262-1 (Version None)
Quarter: 2012Q2

REPORT INFORMATION
  Report Type: 
  Country: None (occurrence: None)
  Receive Date: 20120603
  Receipt Date: 20120522
  Transmission Date: 20120825
  Serious: Yes (Death)
  Sender: FDA-Public Use
  Company Number: GB-TEVA-339342ISR

PATIENT
  Age: 51 Year
  Sex: Female
  Weight: 158 kg

DRUGS (3)
  1. CAPECITABINE [Concomitant]
     Indication: BREAST CANCER METASTATIC
     Dosage: 1GM/KG TWICE A DAY
     Route: 048
     Dates: start: 20110531, end: 20111004
  2. MITOXANTRONE [Suspect]
     Indication: BREAST CANCER METASTATIC
     Dosage: 1 DOSE ONLY.
     Route: 042
     Dates: start: 20111101, end: 20111101
  3. HERCEPTIN [Concomitant]
     Indication: BREAST CANCER METASTATIC
     Route: 042
     Dates: start: 20110308, end: 20111004

REACTIONS (1)
  - NEUTROPENIC SEPSIS [None]
